FAERS Safety Report 24815343 (Version 1)
Quarter: 2025Q1

REPORT INFORMATION
  Report Type: Spontaneous
  Country: CN (occurrence: CN)
  Receive Date: 20250107
  Receipt Date: 20250107
  Transmission Date: 20250409
  Serious: Yes (Other)
  Sender: AMGEN
  Company Number: CN-AMGEN-CHNSP2025000691

PATIENT
  Age: 73 Year
  Sex: Female

DRUGS (4)
  1. BLINCYTO [Suspect]
     Active Substance: BLINATUMOMAB
     Indication: Acute lymphocytic leukaemia
     Route: 040
     Dates: start: 20241216, end: 20241217
  2. BLINCYTO [Suspect]
     Active Substance: BLINATUMOMAB
     Route: 040
     Dates: start: 20241217, end: 20241230
  3. SODIUM CHLORIDE [Concomitant]
     Active Substance: SODIUM CHLORIDE
     Route: 040
     Dates: start: 20241216, end: 20241230
  4. STERILE WATER [Concomitant]
     Active Substance: WATER
     Route: 040
     Dates: start: 20241216, end: 20241230

REACTIONS (3)
  - Liver injury [Recovering/Resolving]
  - Cytokine release syndrome [Recovering/Resolving]
  - Neuropathy peripheral [Recovering/Resolving]

NARRATIVE: CASE EVENT DATE: 20241217
